FAERS Safety Report 7194383-X (Version None)
Quarter: 2010Q4

REPORT INFORMATION
  Report Type: 
  Country: None (occurrence: None)
  Receive Date: 20101223
  Receipt Date: 20101214
  Transmission Date: 20110411
  Serious: Yes (Hospitalization, Disabling, Other)
  Sender: FDA-Public Use
  Company Number: US-CELGENEUS-163-21880-10082586

PATIENT
  Sex: Male

DRUGS (22)
  1. REVLIMID [Suspect]
     Route: 048
     Dates: start: 20100803, end: 20100928
  2. ALLOPURINOL [Concomitant]
     Route: 048
  3. ASCORBIC ACID [Concomitant]
     Route: 048
  4. CINNAMON [Concomitant]
     Route: 048
  5. COLCHICINE [Concomitant]
     Route: 048
  6. FINASTERIDE [Concomitant]
     Route: 048
  7. ZINGIBER OFFICINALIS [Concomitant]
     Route: 065
  8. GLYBURIDE [Concomitant]
     Route: 048
  9. LANTUS [Concomitant]
     Dosage: 100 UNIT/ML, 30 UNITS
     Route: 058
  10. LABETALOL HCL [Concomitant]
     Route: 048
  11. LEVETIRACETAM [Concomitant]
     Route: 048
  12. LEVETIRACETAM [Concomitant]
     Route: 048
  13. LISINOPRIL [Concomitant]
     Route: 048
  14. OMEPRAZOLE MAGNESIUM [Concomitant]
     Route: 048
  15. PREDNISONE [Concomitant]
     Route: 048
  16. PREDNISONE [Concomitant]
     Route: 048
  17. PREDNISONE [Concomitant]
     Route: 065
     Dates: start: 20101104
  18. PREDNISONE [Concomitant]
     Route: 065
     Dates: start: 20101108
  19. PREDNISONE [Concomitant]
     Route: 065
     Dates: start: 20101121
  20. NEULASTA [Concomitant]
     Route: 065
     Dates: start: 20101021
  21. METHYLPREDNISOLONE [Concomitant]
     Route: 051
     Dates: start: 20101025
  22. RITUXAN [Concomitant]
     Route: 065
     Dates: start: 20101122

REACTIONS (5)
  - DIABETES MELLITUS INADEQUATE CONTROL [None]
  - FATIGUE [None]
  - NEUROLOGICAL SYMPTOM [None]
  - PANCYTOPENIA [None]
  - SOMNOLENCE [None]
